FAERS Safety Report 9638920 (Version 1)
Quarter: 2013Q4

REPORT INFORMATION
  Report Type: Spontaneous
  Country: US (occurrence: US)
  Receive Date: 20131022
  Receipt Date: 20131022
  Transmission Date: 20140711
  Serious: No
  Sender: FDA-Public Use
  Company Number: US-BRISTOL-MYERS SQUIBB COMPANY-19079730

PATIENT
  Age: 85 Year
  Sex: Male
  Weight: 77.1 kg

DRUGS (2)
  1. ELIQUIS [Suspect]
     Dates: start: 20130604
  2. AMIODARONE [Suspect]
     Dates: start: 20130604

REACTIONS (1)
  - Chromaturia [Unknown]
